FAERS Safety Report 20142200 (Version 1)
Quarter: 2021Q4

REPORT INFORMATION
  Report Type: Spontaneous
  Country: US (occurrence: None)
  Receive Date: 20211202
  Receipt Date: 20211202
  Transmission Date: 20220303
  Serious: Yes (Other)
  Sender: FDA-Public Use
  Company Number: None

PATIENT
  Age: 85 Year
  Sex: Male

DRUGS (2)
  1. EYLEA [Suspect]
     Active Substance: AFLIBERCEPT
     Indication: Neovascular age-related macular degeneration
     Dosage: OTHER FREQUENCY : MONTHLY;?OTHER ROUTE : INTRAVITREAL;?
     Route: 050
     Dates: start: 20210922, end: 20210922
  2. EYLEA [Suspect]
     Active Substance: AFLIBERCEPT
     Indication: Neovascular age-related macular degeneration
     Dosage: OTHER FREQUENCY : MONTHLY;?OTHER ROUTE : INTRAVITREAL;?
     Route: 050
     Dates: start: 20211117, end: 20211117

REACTIONS (1)
  - Uveitis [None]

NARRATIVE: CASE EVENT DATE: 20210101
